FAERS Safety Report 5421708-5 (Version None)
Quarter: 2007Q3

REPORT INFORMATION
  Report Type: 
  Country: None (occurrence: None)
  Receive Date: 20070821
  Receipt Date: 20070809
  Transmission Date: 20080115
  Serious: Yes (Other)
  Sender: FDA-Public Use
  Company Number: US-PFIZER INC-2007066798

PATIENT
  Sex: Female
  Weight: 55.3 kg

DRUGS (6)
  1. CHANTIX [Suspect]
     Indication: SMOKING CESSATION THERAPY
  2. ALLEGRA [Concomitant]
     Indication: HYPERSENSITIVITY
  3. FLONASE [Concomitant]
     Indication: HYPERSENSITIVITY
  4. SYNTHROID [Concomitant]
  5. ESTRADERM [Concomitant]
  6. VIVELLE-DOT [Concomitant]

REACTIONS (3)
  - BREAST CYST [None]
  - TENDON DISORDER [None]
  - VITREOUS FLOATERS [None]
